FAERS Safety Report 7401949-8 (Version None)
Quarter: 2011Q2

REPORT INFORMATION
  Report Type: 
  Country: None (occurrence: None)
  Receive Date: 20110408
  Receipt Date: 20110404
  Transmission Date: 20111010
  Serious: Yes (Other)
  Sender: FDA-Public Use
  Company Number: AU-PFIZER INC-2011034672

PATIENT
  Sex: Female
  Weight: 60 kg

DRUGS (3)
  1. LIPITOR [Suspect]
     Indication: HYPERLIPIDAEMIA
     Dosage: UNK
  2. TEMAZE [Concomitant]
     Indication: INSOMNIA
     Dosage: 10 MG, ONCE DAILY AS NEEDED
     Route: 048
     Dates: start: 20000101
  3. LIPITOR [Suspect]
     Dosage: 10 MG, 1X/DAY
     Route: 048
     Dates: start: 20020101

REACTIONS (3)
  - AMNESIA [None]
  - KNEE ARTHROPLASTY [None]
  - POST PROCEDURAL PULMONARY EMBOLISM [None]
